FAERS Safety Report 9302583 (Version 1)
Quarter: 2013Q2

REPORT INFORMATION
  Report Type: Spontaneous
  Country: IS (occurrence: None)
  Receive Date: 20130517
  Receipt Date: 20130517
  Transmission Date: 20140414
  Serious: Yes (Hospitalization)
  Sender: FDA-Public Use
  Company Number: IS-011724

PATIENT
  Age: 84 Year
  Sex: Male
  Weight: 67 kg

DRUGS (1)
  1. PICOPREP [Suspect]
     Indication: COLONOSCOPY
     Dosage: (2 SACHETS OF POWDER)
     Dates: start: 20130319, end: 20130320

REACTIONS (2)
  - Pain in extremity [None]
  - Activities of daily living impaired [None]
